FAERS Safety Report 9500736 (Version 1)
Quarter: 2013Q3

REPORT INFORMATION
  Report Type: Spontaneous
  Country: DK (occurrence: DK)
  Receive Date: 20130905
  Receipt Date: 20130905
  Transmission Date: 20140515
  Serious: Yes (Hospitalization)
  Sender: FDA-Public Use
  Company Number: DK-MYLANLABS-2013S1019176

PATIENT
  Age: 40 Year
  Sex: Male

DRUGS (2)
  1. LITHIUM [Suspect]
     Indication: SUICIDE ATTEMPT
     Route: 065
  2. NORTRIPTYLINE [Suspect]
     Indication: SUICIDE ATTEMPT
     Route: 065

REACTIONS (5)
  - Haemodynamic instability [Recovering/Resolving]
  - Cardiac arrest [Recovering/Resolving]
  - Suicide attempt [Recovering/Resolving]
  - Toxicity to various agents [Recovering/Resolving]
  - Toxicity to various agents [Recovering/Resolving]
